FAERS Safety Report 10413242 (Version 1)
Quarter: 2014Q2

REPORT INFORMATION
  Report Type: Spontaneous
  Country: US (occurrence: None)
  Receive Date: 20140530
  Receipt Date: 20140530
  Transmission Date: 20141212
  Serious: No
  Sender: FDA-Public Use
  Company Number: 227396

PATIENT
  Age: 53 Year
  Sex: Female

DRUGS (1)
  1. PICATO (INGENOL MEBUTATE) [Suspect]
     Indication: ACTINIC KERATOSIS
     Route: 061
     Dates: start: 20140427, end: 20140429

REACTIONS (4)
  - Application site scab [None]
  - Application site exfoliation [None]
  - Application site exfoliation [None]
  - Off label use [None]
